FAERS Safety Report 5332449-7 (Version None)
Quarter: 2007Q2

REPORT INFORMATION
  Report Type: 
  Country: None (occurrence: None)
  Receive Date: 20070523
  Receipt Date: 20070521
  Transmission Date: 20071010
  Serious: Yes (Hospitalization, Other)
  Sender: FDA-Public Use
  Company Number: DE-BRISTOL-MYERS SQUIBB COMPANY-13540372

PATIENT
  Age: 77 Year
  Sex: Female

DRUGS (5)
  1. ABATACEPT [Suspect]
     Indication: RHEUMATOID ARTHRITIS
     Route: 042
     Dates: start: 20010129
  2. MTX [Suspect]
     Dates: start: 19940101, end: 20060921
  3. DOLCONTIN [Concomitant]
     Dates: start: 19940101
  4. FOLIC ACID [Concomitant]
     Dates: start: 19940101, end: 20060923
  5. ASPIRIN [Concomitant]
     Dates: end: 20060924

REACTIONS (3)
  - BASAL CELL CARCINOMA [None]
  - NEOPLASM MALIGNANT [None]
  - SQUAMOUS CELL CARCINOMA [None]
